FAERS Safety Report 13105293 (Version 1)
Quarter: 2017Q1

REPORT INFORMATION
  Report Type: Spontaneous
  Country: FR (occurrence: FR)
  Receive Date: 20170111
  Receipt Date: 20170111
  Transmission Date: 20170428
  Serious: Yes (Hospitalization)
  Sender: FDA-Public Use
  Company Number: FR-ELI_LILLY_AND_COMPANY-FR201612010981

PATIENT
  Age: 60 Year
  Sex: Male

DRUGS (1)
  1. CIALIS [Suspect]
     Active Substance: TADALAFIL
     Indication: PRODUCT USED FOR UNKNOWN INDICATION
     Dosage: 20 MG, UNKNOWN
     Route: 065

REACTIONS (7)
  - Abnormal behaviour [Unknown]
  - Irritability [Unknown]
  - Hepatic pain [Unknown]
  - Libido increased [Unknown]
  - Renal pain [Unknown]
  - Counterfeit drug administered [Unknown]
  - Overdose [Unknown]
